FAERS Safety Report 9741456 (Version 2)
Quarter: 2013Q4

REPORT INFORMATION
  Report Type: Report from Study
  Country: CA (occurrence: CA)
  Receive Date: 20131209
  Receipt Date: 20131211
  Transmission Date: 20140711
  Serious: Yes (Death)
  Sender: FDA-Public Use
  Company Number: PHHY2013CA143530

PATIENT
  Age: 79 Year
  Sex: Male

DRUGS (5)
  1. CLOZARIL [Suspect]
     Indication: PSYCHOTIC DISORDER
     Dosage: UNK UKN, UNK
     Dates: start: 20081003
  2. CLOZARIL [Suspect]
     Dosage: 175 MG, QD (75 MG AM AND 100 MG HS)
     Route: 048
     Dates: start: 20100702
  3. SINEMET [Concomitant]
     Dosage: UNK UKN, UNK
  4. COMTAN [Concomitant]
     Dosage: UNK UKN, UNK
  5. FLORINEF [Concomitant]
     Dosage: UNK UKN, UNK

REACTIONS (2)
  - Fall [Fatal]
  - Subdural haematoma [Fatal]
